FAERS Safety Report 4945765-5 (Version None)
Quarter: 2006Q1

REPORT INFORMATION
  Report Type: 
  Country: None (occurrence: None)
  Receive Date: 20060316
  Receipt Date: 20060309
  Transmission Date: 20060701
  Serious: Yes (Hospitalization)
  Sender: FDA-Public Use
  Company Number: GB-BRISTOL-MYERS SQUIBB COMPANY-13312814

PATIENT
  Age: 48 Year
  Sex: Male

DRUGS (10)
  1. EFAVIRENZ [Suspect]
     Indication: HIV INFECTION
     Route: 048
     Dates: start: 20040213, end: 20040511
  2. TENOFOVIR [Concomitant]
     Indication: HIV INFECTION
     Dosage: STOPPED 04-MAR-2004, RESTARTED 04-MAR-2004, STOPPED 11-MAY-2004
     Route: 048
     Dates: start: 20040213
  3. EMTRICITABINE [Concomitant]
     Dosage: STOPPED ON 04-MAR-2004 RESTARTED ON 23-SEP-2004
     Route: 048
     Dates: start: 20040213
  4. DAPSONE [Concomitant]
     Dates: start: 20040213, end: 20040227
  5. AMOXICILLIN + CLAVULANATE POTASSIUM [Concomitant]
     Route: 042
     Dates: start: 20040101, end: 20040101
  6. PIPERACILLIN AND TAZOBACTAM [Concomitant]
     Route: 042
     Dates: start: 20040101, end: 20040101
  7. METRONIDAZOLE [Concomitant]
     Route: 042
     Dates: start: 20040101
  8. CIPROFLOXACIN HCL [Concomitant]
     Route: 048
     Dates: start: 20040101
  9. LAMIVUDINE [Concomitant]
     Dates: start: 20040528, end: 20040923
  10. FLUCONAZOLE [Concomitant]
     Dates: start: 20040101, end: 20040303

REACTIONS (2)
  - HEPATITIS [None]
  - NEUTROPENIA [None]
